FAERS Safety Report 8330392-2 (Version None)
Quarter: 2012Q2

REPORT INFORMATION
  Report Type: 
  Country: None (occurrence: None)
  Receive Date: 20120502
  Receipt Date: 20120409
  Transmission Date: 20120825
  Serious: No
  Sender: FDA-Public Use
  Company Number: US-AMGEN-USASP2012011832

PATIENT
  Age: 51 Year
  Sex: Female

DRUGS (1)
  1. ENBREL [Suspect]
     Indication: PSORIASIS
     Dosage: 50 MG, 2 TIMES/WK
     Dates: start: 20110330

REACTIONS (7)
  - SKIN SWELLING [None]
  - OEDEMA PERIPHERAL [None]
  - PRURITUS [None]
  - SKIN SENSITISATION [None]
  - SKIN DISORDER [None]
  - BURNING SENSATION [None]
  - ERYTHEMA [None]
